FAERS Safety Report 6754227-4 (Version None)
Quarter: 2010Q2

REPORT INFORMATION
  Report Type: 
  Country: None (occurrence: None)
  Receive Date: 20100603
  Receipt Date: 20100522
  Transmission Date: 20101027
  Serious: Yes (Hospitalization)
  Sender: FDA-Public Use
  Company Number: BR-GENENTECH-296932

PATIENT
  Sex: Female
  Weight: 68 kg

DRUGS (2)
  1. MABTHERA [Suspect]
     Indication: RHEUMATOID ARTHRITIS
     Dosage: UNK
     Route: 065
     Dates: start: 20090227, end: 20090319
  2. MABTHERA [Suspect]
     Dosage: UNK
     Route: 065
     Dates: start: 20100106, end: 20100106

REACTIONS (13)
  - ABDOMINAL PAIN [None]
  - AORTIC ARTERIOSCLEROSIS [None]
  - ARTHROPATHY [None]
  - CYSTITIS HAEMORRHAGIC [None]
  - DRUG INEFFECTIVE [None]
  - GAMMA-GLUTAMYLTRANSFERASE INCREASED [None]
  - MONOCYTE COUNT INCREASED [None]
  - NEPHROLITHIASIS [None]
  - RED BLOOD CELL SEDIMENTATION RATE INCREASED [None]
  - RED CELL DISTRIBUTION WIDTH INCREASED [None]
  - VARICOSE VEINS PELVIC [None]
  - VASODILATATION [None]
  - WHITE BLOOD CELL COUNT DECREASED [None]
